FAERS Safety Report 21079029 (Version 2)
Quarter: 2022Q3

REPORT INFORMATION
  Report Type: Spontaneous
  Country: US (occurrence: US)
  Receive Date: 20220713
  Receipt Date: 20220725
  Transmission Date: 20221026
  Serious: Yes (Disabling, Other)
  Sender: FDA-Public Use
  Company Number: US-SA-SAC20220712000113

PATIENT
  Sex: Male

DRUGS (1)
  1. ZANTAC 150 (RANITIDINE HYDROCHLORIDE) [Suspect]
     Active Substance: RANITIDINE HYDROCHLORIDE
     Indication: Dyspepsia
     Dosage: 150 MG
     Route: 065
     Dates: start: 2015, end: 2020

REACTIONS (4)
  - Prostate cancer [Unknown]
  - Disability [Unknown]
  - Injury [Unknown]
  - Pain [Unknown]

NARRATIVE: CASE EVENT DATE: 20211001
